FAERS Safety Report 13839460 (Version 1)
Quarter: 2017Q3

REPORT INFORMATION
  Report Type: Spontaneous
  Country: US (occurrence: US)
  Receive Date: 20170805
  Receipt Date: 20170805
  Transmission Date: 20171127
  Serious: Yes (Hospitalization)
  Sender: FDA-Public Use
  Company Number: None

PATIENT
  Age: 40 Year
  Sex: Male

DRUGS (19)
  1. TACROLIMUS. [Suspect]
     Active Substance: TACROLIMUS
     Indication: PROPHYLAXIS AGAINST GRAFT VERSUS HOST DISEASE
     Dosage: 1.5 MG CONTINUOUS, IV
     Route: 042
     Dates: start: 20170410, end: 20170418
  2. ENOXAPARIN [Concomitant]
     Active Substance: ENOXAPARIN
  3. LORAZAPAM [Concomitant]
     Active Substance: LORAZEPAM
  4. MUPIROCIN. [Concomitant]
     Active Substance: MUPIROCIN
  5. SERTRALINE [Concomitant]
     Active Substance: SERTRALINE HYDROCHLORIDE
  6. SULFAMETHOXAZOLE/TRIMETHOPRIM [Concomitant]
     Active Substance: SULFAMETHOXAZOLE\TRIMETHOPRIM
  7. FLUCONAZOLE. [Concomitant]
     Active Substance: FLUCONAZOLE
  8. FLUORIDE TOPICAL GEL TREATMENT [Concomitant]
     Active Substance: SODIUM FLUORIDE
  9. LOPERAMIDE [Concomitant]
     Active Substance: LOPERAMIDE
  10. OXYCODONE [Suspect]
     Active Substance: OXYCODONE
  11. VANCOMYCIN [Concomitant]
     Active Substance: VANCOMYCIN
  12. ACYCLOVIR. [Concomitant]
     Active Substance: ACYCLOVIR
  13. CHLORHEXADINE [Concomitant]
     Active Substance: CHLORHEXIDINE
  14. MULTIVITAMIN [Suspect]
     Active Substance: VITAMINS
  15. PROCHLORPERAZINE. [Concomitant]
     Active Substance: PROCHLORPERAZINE
  16. VITAMIN E [Concomitant]
     Active Substance: .ALPHA.-TOCOPHEROL
  17. ONDANSETRON [Concomitant]
     Active Substance: ONDANSETRON
  18. SODIUM CHLORIDE. [Concomitant]
     Active Substance: SODIUM CHLORIDE
  19. GLUTAMINE [Concomitant]
     Active Substance: GLUTAMINE

REACTIONS (4)
  - Pericarditis [None]
  - Acute kidney injury [None]
  - Mucosal inflammation [None]
  - Mental status changes [None]

NARRATIVE: CASE EVENT DATE: 20170412
